FAERS Safety Report 25689305 (Version 1)
Quarter: 2025Q3

REPORT INFORMATION
  Report Type: Report from Study
  Country: US (occurrence: US)
  Receive Date: 20250818
  Receipt Date: 20250818
  Transmission Date: 20251021
  Serious: Yes (Hospitalization, Other)
  Sender: Unknown Manufacturer
  Company Number: US-IONIS PHARMACEUTICALS, INC.-2025IS002634

PATIENT

DRUGS (1)
  1. TRYNGOLZA [Suspect]
     Active Substance: OLEZARSEN SODIUM
     Indication: Hypertriglyceridaemia
     Dosage: 80 MILLIGRAM, Q1M
     Route: 058
     Dates: start: 20250618

REACTIONS (1)
  - Cardiac disorder [Not Recovered/Not Resolved]
